FAERS Safety Report 26131485 (Version 1)
Quarter: 2025Q4

REPORT INFORMATION
  Report Type: Spontaneous
  Country: EU (occurrence: EU)
  Receive Date: 20251208
  Receipt Date: 20251208
  Transmission Date: 20260117
  Serious: Yes (Life-Threatening, Hospitalization, Other)
  Sender: FRESENIUS KABI
  Company Number: EU-FreseniusKabi-FK202516673

PATIENT
  Age: 69 Year
  Sex: Female

DRUGS (2)
  1. PIPERACILLIN SODIUM\TAZOBACTAM SODIUM [Suspect]
     Active Substance: PIPERACILLIN SODIUM\TAZOBACTAM SODIUM
     Indication: Wound infection
     Dosage: PIPERACILLIN/TAZOBACTAM FOR 2,5 WEEK THROUGH A PERIPHERALLY INSERTED CENTRAL CATHETER (PICC) LINE
  2. ENALAPRIL [Concomitant]
     Active Substance: ENALAPRIL
     Indication: Hypertension

REACTIONS (2)
  - Drug reaction with eosinophilia and systemic symptoms [Recovered/Resolved]
  - Central nervous system vasculitis [Recovering/Resolving]
